FAERS Safety Report 7396600-X (Version None)
Quarter: 2011Q1

REPORT INFORMATION
  Report Type: 
  Country: None (occurrence: None)
  Receive Date: 20110325
  Receipt Date: 20110310
  Transmission Date: 20110831
  Serious: Yes (Hospitalization)
  Sender: FDA-Public Use
  Company Number: 2011-00322

PATIENT
  Age: 53 Year
  Sex: Male
  Weight: 84.8226 kg

DRUGS (4)
  1. LOVAZA [Concomitant]
  2. SIMVASTATIN TABLETS USP 40 MG (SIMVASTATIN TABLETS 40MG) (40 MILLIGRAM [Suspect]
     Indication: BLOOD CHOLESTEROL INCREASED
     Dosage: 40 MG (40 MG, 1 IN 1 D), PER ORAL
     Route: 048
  3. ASPIRIN, EXTENDED-RELEASE DIPYRIDAMOLE (AGGRENOX) (TABLETS) [Suspect]
     Indication: CEREBROVASCULAR ACCIDENT PROPHYLAXIS
     Dosage: 25MG/250MG (2 IN 1), PER ORAL
     Route: 048
  4. SERTRALINE [Concomitant]

REACTIONS (2)
  - TRANSIENT ISCHAEMIC ATTACK [None]
  - CEREBROVASCULAR ACCIDENT [None]
